FAERS Safety Report 8025727-4 (Version None)
Quarter: 2012Q1

REPORT INFORMATION
  Report Type: 
  Country: None (occurrence: None)
  Receive Date: 20120105
  Receipt Date: 20110111
  Transmission Date: 20120608
  Serious: No
  Sender: FDA-Public Use
  Company Number: US-ABBOTT-11P-163-0697105-00

PATIENT
  Age: 13 Year
  Sex: Female
  Weight: 59.02 kg

DRUGS (2)
  1. VARICELLA-ZOSTER IMMUNE GLOBULIN (HUMAN) [Suspect]
     Indication: PRODUCT USED FOR UNKNOWN INDICATION
     Dosage: UNKNOWN
     Dates: start: 20100801, end: 20100801
  2. SYNTHROID [Suspect]
     Indication: HYPOTHYROIDISM
     Dosage: UNKNOWN
     Dates: end: 20101101

REACTIONS (3)
  - MUSCLE DISORDER [None]
  - BLOOD CREATINE PHOSPHOKINASE INCREASED [None]
  - MUSCULAR WEAKNESS [None]
